FAERS Safety Report 16880364 (Version 1)
Quarter: 2019Q4

REPORT INFORMATION
  Report Type: Spontaneous
  Country: US (occurrence: US)
  Receive Date: 20190807
  Receipt Date: 20190807
  Transmission Date: 20200122
  Serious: No
  Sender: FDA-Public Use
  Company Number: None

PATIENT
  Age: 60 Year
  Sex: Male

DRUGS (1)
  1. STELARA [Suspect]
     Active Substance: USTEKINUMAB
     Indication: PSORIASIS
     Dosage: 45MG EVERY 4 WEEKS FOR 2 SQ
     Route: 058
     Dates: start: 20190612, end: 20190730

REACTIONS (2)
  - Drug delivery system malfunction [None]
  - Incorrect dose administered [None]

NARRATIVE: CASE EVENT DATE: 20190730
